FAERS Safety Report 15472221 (Version 2)
Quarter: 2019Q1

REPORT INFORMATION
  Report Type: Spontaneous
  Country: CA (occurrence: CA)
  Receive Date: 20181008
  Receipt Date: 20190128
  Transmission Date: 20190417
  Serious: Yes (Other)
  Sender: FDA-Public Use
  Company Number: CA-ROCHE-2194922

PATIENT
  Age: 72 Year
  Sex: Female

DRUGS (1)
  1. XOLAIR [Suspect]
     Active Substance: OMALIZUMAB
     Indication: ASTHMA
     Route: 058
     Dates: start: 20180416

REACTIONS (3)
  - Cough [Recovering/Resolving]
  - Pneumonia [Recovering/Resolving]
  - Forced expiratory volume decreased [Unknown]

NARRATIVE: CASE EVENT DATE: 201807
